FAERS Safety Report 15939393 (Version 1)
Quarter: 2019Q1

REPORT INFORMATION
  Report Type: Report from Study
  Country: CA (occurrence: CA)
  Receive Date: 20190208
  Receipt Date: 20190208
  Transmission Date: 20190417
  Serious: Yes (Other)
  Sender: FDA-Public Use
  Company Number: CA-JNJFOC-20190139366

PATIENT
  Age: 63 Year
  Sex: Male
  Weight: 92.53 kg

DRUGS (1)
  1. STELARA [Suspect]
     Active Substance: USTEKINUMAB
     Indication: CROHN^S DISEASE
     Route: 058
     Dates: start: 20181204

REACTIONS (2)
  - Chronic obstructive pulmonary disease [Unknown]
  - Malignant palate neoplasm [Unknown]

NARRATIVE: CASE EVENT DATE: 201812
